FAERS Safety Report 18252530 (Version 2)
Quarter: 2020Q3

REPORT INFORMATION
  Report Type: Report from Study
  Country: JP (occurrence: JP)
  Receive Date: 20200910
  Receipt Date: 20200918
  Transmission Date: 20201103
  Serious: Yes (Life-Threatening, Other)
  Sender: FDA-Public Use
  Company Number: JP-ACCORD-200048

PATIENT
  Age: 55 Year
  Sex: Female

DRUGS (1)
  1. CARBOPLATIN. [Suspect]
     Active Substance: CARBOPLATIN
     Indication: OVARIAN CANCER STAGE III
     Dosage: PRIOR 25 DOSES

REACTIONS (5)
  - Anaphylactic reaction [Unknown]
  - Flushing [Unknown]
  - Hypotension [Unknown]
  - Hypersensitivity [Unknown]
  - Chest pain [Unknown]
